FAERS Safety Report 17694161 (Version 2)
Quarter: 2020Q2

REPORT INFORMATION
  Report Type: Report from Study
  Country: US (occurrence: US)
  Receive Date: 20200422
  Receipt Date: 20200515
  Transmission Date: 20200714
  Serious: Yes (Death)
  Sender: FDA-Public Use
  Company Number: US-ASTRAZENECA-2020SE53457

PATIENT
  Sex: Male
  Weight: 83 kg

DRUGS (1)
  1. LYNPARZA [Suspect]
     Active Substance: OLAPARIB
     Indication: NEOPLASM MALIGNANT
     Route: 048

REACTIONS (4)
  - Therapeutic product effect decreased [Unknown]
  - Prostate cancer [Fatal]
  - Therapy cessation [Unknown]
  - Renal failure [Fatal]
